FAERS Safety Report 7722325-4 (Version None)
Quarter: 2011Q3

REPORT INFORMATION
  Report Type: 
  Country: None (occurrence: None)
  Receive Date: 20110831
  Receipt Date: 20110823
  Transmission Date: 20111222
  Serious: Yes (Death)
  Sender: FDA-Public Use
  Company Number: US-BAXTER-2011BH027331

PATIENT
  Age: 62 Year
  Sex: Female

DRUGS (2)
  1. ANTIBIOTICS [Concomitant]
     Indication: PRODUCT USED FOR UNKNOWN INDICATION
     Route: 065
  2. DIANEAL [Suspect]
     Indication: PERITONEAL DIALYSIS
     Route: 033
     Dates: start: 20110201, end: 20110821

REACTIONS (3)
  - CEREBROVASCULAR ACCIDENT [None]
  - LIVER DISORDER [None]
  - INFECTION [None]
